FAERS Safety Report 20425428 (Version 1)
Quarter: 2022Q1

REPORT INFORMATION
  Report Type: Report from Study
  Country: US (occurrence: US)
  Receive Date: 20220204
  Receipt Date: 20220204
  Transmission Date: 20220423
  Serious: No
  Sender: FDA-Public Use
  Company Number: US-EXELIXIS-CABO-21037610

PATIENT
  Sex: Male

DRUGS (6)
  1. CABOMETYX [Suspect]
     Active Substance: CABOZANTINIB S-MALATE
     Indication: Renal cell carcinoma
     Dosage: 60 MG, QD
     Dates: start: 20210120
  2. CABOMETYX [Suspect]
     Active Substance: CABOZANTINIB S-MALATE
     Dosage: 60 MG, QD
  3. CABOMETYX [Suspect]
     Active Substance: CABOZANTINIB S-MALATE
     Dosage: 40 MG, QD
     Dates: start: 20210317
  4. CABOMETYX [Suspect]
     Active Substance: CABOZANTINIB S-MALATE
     Dosage: 40 MG, QD
  5. CABOMETYX [Suspect]
     Active Substance: CABOZANTINIB S-MALATE
     Dosage: 40 MG, QD
  6. LEVOTHYROXINE [Concomitant]
     Active Substance: LEVOTHYROXINE
     Indication: Hypothyroidism
     Dosage: UNK

REACTIONS (9)
  - Adverse event [Unknown]
  - Nasopharyngitis [Recovering/Resolving]
  - Back pain [Recovering/Resolving]
  - Pruritus [Not Recovered/Not Resolved]
  - Tinnitus [Recovering/Resolving]
  - Blood pressure increased [Recovered/Resolved]
  - Headache [Recovering/Resolving]
  - Pain in extremity [Unknown]
  - Mobility decreased [Unknown]
